FAERS Safety Report 14646653 (Version 1)
Quarter: 2018Q1

REPORT INFORMATION
  Report Type: Spontaneous
  Country: US (occurrence: US)
  Receive Date: 20180315
  Receipt Date: 20180315
  Transmission Date: 20180509
  Serious: Yes (Death, Hospitalization)
  Sender: FDA-Public Use
  Company Number: None

PATIENT
  Age: 57 Year
  Sex: Female
  Weight: 87.3 kg

DRUGS (5)
  1. DAUNORUBICIN [Concomitant]
     Active Substance: DAUNORUBICIN
     Dates: end: 20180213
  2. DEXAMETHASONE. [Concomitant]
     Active Substance: DEXAMETHASONE
     Dates: end: 20180119
  3. VINCRISTINE SULFATE. [Concomitant]
     Active Substance: VINCRISTINE SULFATE
     Dates: end: 20180213
  4. CYTARABINE. [Suspect]
     Active Substance: CYTARABINE
     Dates: end: 20180123
  5. METHOTREXATE. [Concomitant]
     Active Substance: METHOTREXATE
     Dates: end: 20180206

REACTIONS (2)
  - Off label use [None]
  - Disease progression [None]

NARRATIVE: CASE EVENT DATE: 20180310
